FAERS Safety Report 6060270-3 (Version None)
Quarter: 2009Q1

REPORT INFORMATION
  Report Type: 
  Country: None (occurrence: None)
  Receive Date: 20090129
  Receipt Date: 20090119
  Transmission Date: 20090719
  Serious: Yes (Other)
  Sender: FDA-Public Use
  Company Number: 2009AP000265

PATIENT
  Age: 67 Year
  Sex: Female

DRUGS (6)
  1. ALENDRONATE SODIUM [Suspect]
     Indication: OSTEOPOROSIS
     Dosage: 70 MG; TAB; PO; QIW
     Route: 048
     Dates: start: 20050101, end: 20090101
  2. LEVOTHYROXINE SODIUM [Concomitant]
  3. RABEPRAZOLE SODIUM [Concomitant]
  4. FLUTICASONE PROPIONATE [Concomitant]
  5. SALMETEROL (SALMETEROL) [Concomitant]
  6. IMATINIB MESYLATE [Concomitant]

REACTIONS (1)
  - FOOT FRACTURE [None]
